FAERS Safety Report 4971604-2 (Version None)
Quarter: 2006Q2

REPORT INFORMATION
  Report Type: 
  Country: None (occurrence: None)
  Receive Date: 20060407
  Receipt Date: 20060330
  Transmission Date: 20061013
  Serious: Yes (Other)
  Sender: FDA-Public Use
  Company Number: 2006043804

PATIENT
  Age: 15 Year
  Sex: Male
  Weight: 81.6475 kg

DRUGS (2)
  1. FRESHBURST LISTERINE (MENTHOL, METHYL SALICYLATE, EUCALYPTOL, THYMOL) [Suspect]
     Dosage: 1.5 LITER BOTTLE ONCE, ORAL
     Route: 048
     Dates: start: 20060330, end: 20060330
  2. ZOLPIDEM TARTRATE [Concomitant]

REACTIONS (3)
  - FEELING DRUNK [None]
  - INTENTIONAL DRUG MISUSE [None]
  - VOMITING [None]
